FAERS Safety Report 21080050 (Version 4)
Quarter: 2022Q3

REPORT INFORMATION
  Report Type: Spontaneous
  Country: CA (occurrence: CA)
  Receive Date: 20220714
  Receipt Date: 20220902
  Transmission Date: 20221027
  Serious: Yes (Other)
  Sender: FDA-Public Use
  Company Number: CA-CELLTRION INC.-2020CA032435

PATIENT

DRUGS (18)
  1. INFLECTRA [Suspect]
     Active Substance: INFLIXIMAB-DYYB
     Indication: Colitis ulcerative
     Dosage: 175 MG AT 0, 2, 6, EVERY 8 WEEKS
     Route: 042
     Dates: start: 20200804
  2. INFLECTRA [Suspect]
     Active Substance: INFLIXIMAB-DYYB
     Indication: Crohn^s disease
     Dosage: 175 MG AT 0, 2, 6, EVERY 8 WEEKS
     Route: 042
     Dates: start: 20200817
  3. INFLECTRA [Suspect]
     Active Substance: INFLIXIMAB-DYYB
     Dosage: 175 MG AT 0, 2, 6, EVERY 8 WEEKS
     Route: 042
     Dates: start: 20200914
  4. INFLECTRA [Suspect]
     Active Substance: INFLIXIMAB-DYYB
     Dosage: 175 MG AT 0, 2, 6, EVERY 8 WEEKS
     Route: 042
     Dates: start: 20201113
  5. INFLECTRA [Suspect]
     Active Substance: INFLIXIMAB-DYYB
     Dosage: 175 MG AT 0, 2, 6, EVERY 8 WEEKS
     Route: 042
     Dates: start: 20210108
  6. INFLECTRA [Suspect]
     Active Substance: INFLIXIMAB-DYYB
     Dosage: 175 MG, EVERY 6 WEEKS
     Route: 042
     Dates: start: 20210430
  7. INFLECTRA [Suspect]
     Active Substance: INFLIXIMAB-DYYB
     Dosage: 175 MG, EVERY 6 WEEKS
     Route: 042
     Dates: start: 20210611
  8. INFLECTRA [Suspect]
     Active Substance: INFLIXIMAB-DYYB
     Dosage: 175 MG, EVERY 6 WEEKS
     Route: 042
     Dates: start: 20210723
  9. INFLECTRA [Suspect]
     Active Substance: INFLIXIMAB-DYYB
     Dosage: 175 MG EVERY 6 WEEKS
     Route: 042
     Dates: start: 20210903
  10. INFLECTRA [Suspect]
     Active Substance: INFLIXIMAB-DYYB
     Dosage: 175 MG EVERY 6 WEEKS
     Route: 042
     Dates: start: 20211015
  11. INFLECTRA [Suspect]
     Active Substance: INFLIXIMAB-DYYB
     Dosage: 175 MG EVERY 6 WEEKS
     Route: 042
     Dates: start: 20211126
  12. INFLECTRA [Suspect]
     Active Substance: INFLIXIMAB-DYYB
     Dosage: 175 MG EVERY 6 WEEKS
     Route: 042
     Dates: start: 20220107
  13. INFLECTRA [Suspect]
     Active Substance: INFLIXIMAB-DYYB
     Dosage: 175 MG EVERY 4 WEEKS
     Route: 042
     Dates: start: 20220204
  14. INFLECTRA [Suspect]
     Active Substance: INFLIXIMAB-DYYB
     Dosage: 175 MG EVERY 4 WEEKS
     Route: 042
     Dates: start: 20220301
  15. INFLECTRA [Suspect]
     Active Substance: INFLIXIMAB-DYYB
     Dosage: 175 MG EVERY 4 WEEKS
     Route: 042
     Dates: start: 20220329
  16. INFLECTRA [Suspect]
     Active Substance: INFLIXIMAB-DYYB
     Dosage: 175 MG EVERY 4 WEEKS
     Route: 042
     Dates: start: 20220426
  17. INFLECTRA [Suspect]
     Active Substance: INFLIXIMAB-DYYB
     Dosage: 175 MG EVERY 4 WEEKS
     Route: 042
     Dates: start: 20220607
  18. INFLECTRA [Suspect]
     Active Substance: INFLIXIMAB-DYYB
     Dosage: 175 MG EVERY 4 WEEKS
     Route: 042
     Dates: start: 20220704, end: 20220704

REACTIONS (12)
  - Blood pressure decreased [Recovered/Resolved]
  - Cough [Recovered/Resolved]
  - Chest discomfort [Recovered/Resolved]
  - Weight decreased [Unknown]
  - Dyspnoea [Recovered/Resolved]
  - Blood pressure fluctuation [Unknown]
  - Drug specific antibody present [Unknown]
  - Off label use [Unknown]
  - Drug level decreased [Not Recovered/Not Resolved]
  - Inappropriate schedule of product administration [Unknown]
  - Therapeutic product effect incomplete [Not Recovered/Not Resolved]
  - Condition aggravated [Not Recovered/Not Resolved]

NARRATIVE: CASE EVENT DATE: 20201113
